FAERS Safety Report 5872450-8 (Version None)
Quarter: 2008Q3

REPORT INFORMATION
  Report Type: 
  Country: None (occurrence: None)
  Receive Date: 20080905
  Receipt Date: 20080830
  Transmission Date: 20090109
  Serious: Yes (Other)
  Sender: FDA-Public Use
  Company Number: PHHY2008BR19909

PATIENT
  Age: 49 Year
  Sex: Female

DRUGS (1)
  1. EXFORGE [Suspect]
     Dosage: 1 TABLET OF VALSARTAN AND 1 TABLET OF AMLODIPINE BESYLATE
     Dates: start: 20080829

REACTIONS (6)
  - EYE SWELLING [None]
  - HEADACHE [None]
  - NASAL CONGESTION [None]
  - NAUSEA [None]
  - SENSATION OF HEAVINESS [None]
  - TREMOR [None]
